FAERS Safety Report 24274255 (Version 2)
Quarter: 2025Q2

REPORT INFORMATION
  Report Type: Spontaneous
  Country: US (occurrence: US)
  Receive Date: 20240902
  Receipt Date: 20250410
  Transmission Date: 20250716
  Serious: No
  Sender: ROCHE
  Company Number: US-ROCHE-10000071330

PATIENT
  Age: 24 Year
  Sex: Male

DRUGS (5)
  1. HEMLIBRA [Suspect]
     Active Substance: EMICIZUMAB-KXWH
     Indication: Factor VIII deficiency
     Dosage: STRENGTH: 150 MG/ML
     Route: 058
     Dates: start: 201604
  2. HEMLIBRA [Suspect]
     Active Substance: EMICIZUMAB-KXWH
     Dosage: STRENGTH: 60 MG/0.4 ML
     Route: 058
     Dates: start: 201604
  3. HEMLIBRA [Suspect]
     Active Substance: EMICIZUMAB-KXWH
     Route: 058
     Dates: start: 201604
  4. HEMLIBRA [Suspect]
     Active Substance: EMICIZUMAB-KXWH
     Route: 058
     Dates: start: 201604
  5. ADVATE [Concomitant]
     Active Substance: ANTIHEMOPHILIC FACTOR, HUMAN RECOMBINANT

REACTIONS (2)
  - Haemorrhage [Recovered/Resolved]
  - Haemorrhage [Unknown]

NARRATIVE: CASE EVENT DATE: 20240814
